FAERS Safety Report 9980936 (Version 1)
Quarter: 2014Q1

REPORT INFORMATION
  Report Type: Spontaneous
  Country: US (occurrence: US)
  Receive Date: 20140307
  Receipt Date: 20140307
  Transmission Date: 20141002
  Serious: Yes (Other)
  Sender: FDA-Public Use
  Company Number: US-PFIZER INC-2014066901

PATIENT
  Age: 60 Year
  Sex: Male

DRUGS (2)
  1. LYRICA [Suspect]
     Indication: MUSCULOSKELETAL DISCOMFORT
     Dosage: 150 MG, 2X/DAY
  2. LYRICA [Suspect]
     Indication: LIMB DISCOMFORT

REACTIONS (3)
  - Blood pressure increased [Recovered/Resolved]
  - Arthritis [Unknown]
  - Chest pain [Unknown]
